FAERS Safety Report 6608793-X (Version None)
Quarter: 2010Q1

REPORT INFORMATION
  Report Type: 
  Country: None (occurrence: None)
  Receive Date: 20100301
  Receipt Date: 20100215
  Transmission Date: 20100710
  Serious: Yes (Death)
  Sender: FDA-Public Use
  Company Number: US-JNJFOC-20100209578

PATIENT
  Age: 16 Year
  Sex: Female
  Weight: 78.02 kg

DRUGS (3)
  1. EXTRA STRENGTH TYLENOL PM [Suspect]
  2. EXTRA STRENGTH TYLENOL PM [Suspect]
     Indication: SUICIDE ATTEMPT
     Dosage: LARGE AMOUNTS APPROXIMATELY 60-100 PILLS OVER SEVERAL DAYS
  3. FENTANYL-100 [Concomitant]
     Indication: DRUG USE FOR UNKNOWN INDICATION

REACTIONS (2)
  - COMPLETED SUICIDE [None]
  - INTENTIONAL OVERDOSE [None]
